FAERS Safety Report 7462645-4 (Version None)
Quarter: 2011Q2

REPORT INFORMATION
  Report Type: 
  Country: None (occurrence: None)
  Receive Date: 20110506
  Receipt Date: 20110428
  Transmission Date: 20111010
  Serious: Yes (Other)
  Sender: FDA-Public Use
  Company Number: PHHY2010CA16436

PATIENT
  Sex: Female

DRUGS (2)
  1. CLOZARIL [Suspect]
     Dates: start: 20001221, end: 20100301
  2. CLOZARIL [Suspect]
     Dates: start: 20100727

REACTIONS (2)
  - HYPOTENSION [None]
  - CEREBROVASCULAR ACCIDENT [None]
